FAERS Safety Report 23118021 (Version 1)
Quarter: 2023Q4

REPORT INFORMATION
  Report Type: Spontaneous
  Country: JP (occurrence: JP)
  Receive Date: 20231027
  Receipt Date: 20231027
  Transmission Date: 20240110
  Serious: No
  Sender: FDA-Public Use
  Company Number: JP-PFIZER INC-PV202300175393

PATIENT

DRUGS (2)
  1. PAXLOVID [Interacting]
     Active Substance: NIRMATRELVIR\RITONAVIR
     Indication: COVID-19 treatment
     Dosage: UNK
  2. EPLERENONE [Interacting]
     Active Substance: EPLERENONE
     Dosage: UNK

REACTIONS (3)
  - Contraindicated product administered [Unknown]
  - Potentiating drug interaction [Unknown]
  - Blood pressure decreased [Unknown]
